FAERS Safety Report 13569967 (Version 2)
Quarter: 2017Q2

REPORT INFORMATION
  Report Type: Spontaneous
  Country: NL (occurrence: NL)
  Receive Date: 20170522
  Receipt Date: 20170527
  Transmission Date: 20170830
  Serious: Yes (Life-Threatening, Hospitalization)
  Sender: FDA-Public Use
  Company Number: NL-TEVA-768427ACC

PATIENT
  Age: 89 Year
  Sex: Female

DRUGS (3)
  1. METHOTREXATE TABLET 10MG [Suspect]
     Active Substance: METHOTREXATE
     Dosage: 15MG, 1 TIME PER WEEK
     Route: 048
     Dates: start: 20160204, end: 20170418
  2. SULFASALAZINE. [Suspect]
     Active Substance: SULFASALAZINE
     Dosage: 1000MG, 2 TIMES PER DAY
     Route: 048
     Dates: start: 20160204, end: 20170418
  3. FOLIUMZUUR [Concomitant]
     Active Substance: FOLIC ACID
     Dosage: 5MG, 1 TIME PER WEEK
     Route: 048
     Dates: start: 20160204

REACTIONS (2)
  - Interstitial lung disease [Recovered/Resolved]
  - Dyspnoea [Recovered/Resolved]

NARRATIVE: CASE EVENT DATE: 20170418
